FAERS Safety Report 6996796-5 (Version None)
Quarter: 2010Q3

REPORT INFORMATION
  Report Type: 
  Country: None (occurrence: None)
  Receive Date: 20100918
  Receipt Date: 20090715
  Transmission Date: 20110219
  Serious: No
  Sender: FDA-Public Use
  Company Number: US-WYE-H10181209

PATIENT
  Sex: Male
  Weight: 90.8 kg

DRUGS (3)
  1. EFFEXOR XR [Suspect]
     Indication: PANIC ATTACK
     Route: 048
     Dates: start: 19970101
  2. EFFEXOR XR [Suspect]
     Dosage: HAS BEEN TAPERING OFF BY INCREMENTS OF 37.5 MG
     Route: 048
  3. TRAZODONE HCL [Concomitant]

REACTIONS (5)
  - DIZZINESS [None]
  - DRUG WITHDRAWAL SYNDROME [None]
  - HYPOAESTHESIA [None]
  - NAUSEA [None]
  - PARAESTHESIA [None]
